FAERS Safety Report 18113239 (Version 1)
Quarter: 2020Q3

REPORT INFORMATION
  Report Type: Spontaneous
  Country: US (occurrence: US)
  Receive Date: 20200805
  Receipt Date: 20200805
  Transmission Date: 20201103
  Serious: Yes (Other)
  Sender: FDA-Public Use
  Company Number: US-BAUSCH-BL-2020-021617

PATIENT
  Age: 63 Year
  Sex: Male
  Weight: 113.5 kg

DRUGS (1)
  1. CUPRIMINE [Suspect]
     Active Substance: PENICILLAMINE
     Indication: HEPATO-LENTICULAR DEGENERATION
     Route: 065

REACTIONS (1)
  - White blood cell count decreased [Unknown]
